FAERS Safety Report 7923501-8 (Version None)
Quarter: 2011Q4

REPORT INFORMATION
  Report Type: 
  Country: None (occurrence: None)
  Receive Date: 20111117
  Receipt Date: 20110203
  Transmission Date: 20120403
  Serious: No
  Sender: FDA-Public Use
  Company Number: US-AMGEN-USASP2011007337

PATIENT
  Age: 43 Year
  Sex: Female

DRUGS (2)
  1. ENBREL [Suspect]
     Indication: PSORIASIS
  2. ENBREL [Suspect]
     Indication: PSORIATIC ARTHROPATHY
     Dosage: UNK
     Dates: start: 20020401, end: 20070101

REACTIONS (5)
  - OROPHARYNGEAL PAIN [None]
  - NASAL CONGESTION [None]
  - LIVER FUNCTION TEST ABNORMAL [None]
  - COUGH [None]
  - PSORIATIC ARTHROPATHY [None]
